FAERS Safety Report 18516443 (Version 1)
Quarter: 2020Q4

REPORT INFORMATION
  Report Type: Report from Study
  Country: BR (occurrence: BR)
  Receive Date: 20201118
  Receipt Date: 20201118
  Transmission Date: 20210114
  Serious: Yes (Other)
  Sender: FDA-Public Use
  Company Number: BR-JNJFOC-20200613977

PATIENT
  Age: 37 Year
  Sex: Male
  Weight: 91 kg

DRUGS (3)
  1. REMICADE [Suspect]
     Active Substance: INFLIXIMAB
     Indication: CROHN^S DISEASE
     Dosage: 5 VIALS, START DATE JAN-N2020 (REPORTED DURING CALL)
     Route: 042
     Dates: start: 20111110, end: 20200601
  2. AZATHIOPRINE. [Concomitant]
     Active Substance: AZATHIOPRINE
     Dosage: 4 TABLETS
  3. INFLIXIMAB, RECOMBINANT [Suspect]
     Active Substance: INFLIXIMAB
     Indication: CROHN^S DISEASE
     Dosage: 5 VIALS, START DATE JAN-2020 (REPORTED DURING CALL)
     Route: 042
     Dates: start: 20111110, end: 20200601

REACTIONS (1)
  - Coronavirus infection [Unknown]

NARRATIVE: CASE EVENT DATE: 20200531
